FAERS Safety Report 10085418 (Version 2)
Quarter: 2014Q2

REPORT INFORMATION
  Report Type: Spontaneous
  Country: US (occurrence: US)
  Receive Date: 20140418
  Receipt Date: 20140418
  Transmission Date: 20141212
  Serious: Yes (Hospitalization)
  Sender: FDA-Public Use
  Company Number: US-AMGEN INC.-USASP2014021622

PATIENT
  Age: 69 Year
  Sex: Female
  Weight: 49.98 kg

DRUGS (4)
  1. PROLIA [Suspect]
     Indication: OSTEOPOROSIS POSTMENOPAUSAL
     Dosage: 60 MG, Q6MO
     Route: 058
     Dates: start: 20140129
  2. NEXIUM                             /01479302/ [Concomitant]
  3. VITAMIN D                          /00107901/ [Concomitant]
  4. DILTIAZEM [Concomitant]

REACTIONS (6)
  - Dyspnoea [Recovered/Resolved]
  - Head discomfort [Recovered/Resolved]
  - Drug hypersensitivity [Unknown]
  - Jaw disorder [Unknown]
  - Dental caries [Unknown]
  - Gait disturbance [Unknown]
